FAERS Safety Report 9156699 (Version 1)
Quarter: 2013Q1

REPORT INFORMATION
  Report Type: Spontaneous
  Country: RO (occurrence: None)
  Receive Date: 20130208
  Receipt Date: 20130208
  Transmission Date: 20140127
  Serious: Yes (Hospitalization)
  Sender: FDA-Public Use
  Company Number: 2013000009

PATIENT
  Age: 62 Year
  Sex: Female

DRUGS (3)
  1. ACEON (PERINDOPRIL ERBUMINE) TABLET [Suspect]
     Route: 048
     Dates: start: 201003, end: 201101
  2. KETOPROFEN [Suspect]
  3. SILYBUM MARIANUM (SILYBUM MARIANUM) [Concomitant]

REACTIONS (9)
  - Urinary tract infection [None]
  - Renal failure acute [None]
  - Nausea [None]
  - Decreased appetite [None]
  - Fatigue [None]
  - Pollakiuria [None]
  - Dehydration [None]
  - Palpitations [None]
  - Blood pressure increased [None]
